FAERS Safety Report 8722050 (Version 3)
Quarter: 2012Q4

REPORT INFORMATION
  Report Type: Report from Study
  Country: NL (occurrence: NL)
  Receive Date: 20120814
  Receipt Date: 20121213
  Transmission Date: 20130627
  Serious: Yes (Hospitalization)
  Sender: FDA-Public Use
  Company Number: PHHO2012NL011730

PATIENT
  Age: 78 Year
  Sex: Female
  Weight: 170 kg

DRUGS (3)
  1. AMN107 [Suspect]
     Indication: CHRONIC MYELOID LEUKAEMIA
     Dosage: 300 mg, BID
     Route: 048
     Dates: start: 20100826
  2. SELOKEEN [Concomitant]
     Indication: PROPHYLAXIS
     Dosage: 100 mg, QD
     Route: 048
     Dates: start: 20100826
  3. ASCAL [Concomitant]
     Indication: PROPHYLAXIS
     Dosage: 80 mg, QD
     Route: 048
     Dates: start: 20100826

REACTIONS (1)
  - Transient ischaemic attack [Recovered/Resolved]
